FAERS Safety Report 10622441 (Version 3)
Quarter: 2014Q4

REPORT INFORMATION
  Report Type: Spontaneous
  Country: US (occurrence: US)
  Receive Date: 20141203
  Receipt Date: 20141205
  Transmission Date: 20150529
  Serious: Yes (Hospitalization, Other)
  Sender: FDA-Public Use
  Company Number: US-009507513-0903USA04197

PATIENT
  Sex: Female
  Weight: 68.39 kg

DRUGS (3)
  1. FOSAMAX [Suspect]
     Active Substance: ALENDRONATE SODIUM
     Dosage: 70 MG, UNK
     Route: 048
     Dates: start: 20020718, end: 20050502
  2. PRILOSEC [Concomitant]
     Active Substance: OMEPRAZOLE MAGNESIUM
     Indication: GASTROOESOPHAGEAL REFLUX DISEASE
     Dates: start: 199301, end: 200301
  3. FOSAMAX [Suspect]
     Active Substance: ALENDRONATE SODIUM
     Indication: OSTEOPOROSIS
     Dosage: 10 MG, QD
     Route: 048
     Dates: start: 199607, end: 200506

REACTIONS (56)
  - Femur fracture [Not Recovered/Not Resolved]
  - Fracture nonunion [Unknown]
  - Sleep disorder [Not Recovered/Not Resolved]
  - Blood potassium decreased [Unknown]
  - Anaemia [Unknown]
  - Vitamin D deficiency [Unknown]
  - Abdominal pain upper [Unknown]
  - Intramedullary rod insertion [Unknown]
  - Vaginal infection [Not Recovered/Not Resolved]
  - Oral herpes [Not Recovered/Not Resolved]
  - Sleep apnoea syndrome [Unknown]
  - Constipation [Unknown]
  - Muscle spasms [Unknown]
  - Surgery [Unknown]
  - Stress fracture [Unknown]
  - Blood cholesterol increased [Not Recovered/Not Resolved]
  - Plantar fasciitis [Unknown]
  - Breast disorder [Unknown]
  - Hypertonic bladder [Unknown]
  - Osteopenia [Not Recovered/Not Resolved]
  - Cataract nuclear [Unknown]
  - Asthenia [Unknown]
  - Hip fracture [Unknown]
  - Surgery [Not Recovered/Not Resolved]
  - Bone disorder [Unknown]
  - Depression [Not Recovered/Not Resolved]
  - Anxiety [Not Recovered/Not Resolved]
  - Arthritis [Not Recovered/Not Resolved]
  - Productive cough [Unknown]
  - Hypoaesthesia [Unknown]
  - Abdominal pain [Unknown]
  - Femur fracture [Unknown]
  - Femur fracture [Unknown]
  - Fracture nonunion [Not Recovered/Not Resolved]
  - Sinusitis [Not Recovered/Not Resolved]
  - Skin injury [Not Recovered/Not Resolved]
  - Meniere^s disease [Unknown]
  - Asthenia [Not Recovered/Not Resolved]
  - Dizziness [Unknown]
  - Muscle spasms [Unknown]
  - Eye infection [Unknown]
  - Migraine [Unknown]
  - Bursitis [Unknown]
  - Lower limb fracture [Unknown]
  - Headache [Unknown]
  - Musculoskeletal pain [Not Recovered/Not Resolved]
  - Urinary tract infection [Unknown]
  - Burning sensation [Unknown]
  - Weight fluctuation [Unknown]
  - Dehydration [Unknown]
  - Fall [Unknown]
  - Sinus congestion [Not Recovered/Not Resolved]
  - Neck pain [Not Recovered/Not Resolved]
  - Dysphonia [Unknown]
  - Psoriasis [Unknown]
  - Myalgia [Not Recovered/Not Resolved]

NARRATIVE: CASE EVENT DATE: 199610
